FAERS Safety Report 5265419-8 (Version None)
Quarter: 2007Q1

REPORT INFORMATION
  Report Type: 
  Country: None (occurrence: None)
  Receive Date: 20070314
  Receipt Date: 20070309
  Transmission Date: 20070707
  Serious: Yes (Hospitalization)
  Sender: FDA-Public Use
  Company Number: FR-BRISTOL-MYERS SQUIBB COMPANY-13709506

PATIENT
  Age: 69 Year
  Sex: Male
  Weight: 71 kg

DRUGS (6)
  1. TAXOL [Suspect]
     Indication: LUNG NEOPLASM
     Route: 042
     Dates: start: 20070205, end: 20070205
  2. CARBOPLATIN [Suspect]
     Indication: LUNG NEOPLASM
     Route: 042
     Dates: start: 20070205, end: 20070205
  3. SOLUPRED [Suspect]
     Indication: LUNG NEOPLASM
     Route: 048
  4. LOVENOX [Suspect]
     Route: 058
     Dates: start: 20070117
  5. VASTAREL [Suspect]
  6. KARDEGIC [Suspect]

REACTIONS (2)
  - DYSPHONIA [None]
  - SPEECH DISORDER [None]
